FAERS Safety Report 9524086 (Version 2)
Quarter: 2013Q3

REPORT INFORMATION
  Report Type: Spontaneous
  Country: GB (occurrence: None)
  Receive Date: 20130912
  Receipt Date: 20130924
  Transmission Date: 20140515
  Serious: Yes (Hospitalization)
  Sender: FDA-Public Use
  Company Number: 2013-1472

PATIENT
  Age: 70 Year
  Sex: Male
  Weight: 83.6 kg

DRUGS (16)
  1. CARFILZOMIB [Suspect]
     Indication: PLASMA CELL MYELOMA
     Dosage: 41 MG, DAYS 1, 2?207 D
     Route: 042
     Dates: start: 20120815, end: 20120816
  2. DEXAMETHASONE (DECAMETHASONE) (DEXAMETHASONE) [Concomitant]
  3. LANSOPRAZOLE (LANSOPRAZOLE) (LANSOPRAZOLE) [Concomitant]
  4. ACICLOVIR (ACICLOVIR) (ACICLOVIR) [Concomitant]
  5. AMLODIPINE (AMLODIPINE) (AMLODIPINE) [Concomitant]
  6. ATENOLOL (ATENOLOL) ATENOLOL) [Concomitant]
  7. ERYTHROPOIETIN (ERYTHROPOIETIN) (ERTHYROPOIETIN) [Concomitant]
  8. PAMIDRONATE (PAMIDRONATE DISODIUM) (PAMIDRONATE DISODIUM) [Concomitant]
  9. ALLOPURINOL [Concomitant]
  10. AMOXICILLIN [Concomitant]
  11. DOMPERIDONE [Concomitant]
  12. GENTAMYCIN [Concomitant]
  13. PARACETAMOL [Concomitant]
  14. SODIUM DOCUSATE (DOCUSATE SODIUM) [Concomitant]
  15. TAZOCIN (PIPERACILLIN SODIUM, TAZOBACTAM SODIUM) [Concomitant]
  16. FLUCLOXACILLIN [Concomitant]

REACTIONS (2)
  - Urinary tract infection [None]
  - Escherichia test positive [None]
